FAERS Safety Report 13360653 (Version 3)
Quarter: 2017Q2

REPORT INFORMATION
  Report Type: Report from Study
  Country: US (occurrence: US)
  Receive Date: 20170322
  Receipt Date: 20170419
  Transmission Date: 20170830
  Serious: Yes (Death, Hospitalization)
  Sender: FDA-Public Use
  Company Number: US-ACTELION-A-US2017-148021

PATIENT
  Age: 79 Year
  Sex: Female

DRUGS (1)
  1. OPSUMIT [Suspect]
     Active Substance: MACITENTAN
     Indication: PULMONARY ARTERIAL HYPERTENSION
     Dosage: 10 MG, QD
     Route: 048
     Dates: start: 20150422, end: 20170410

REACTIONS (10)
  - Pneumonia [Not Recovered/Not Resolved]
  - White blood cell count increased [Recovered/Resolved]
  - Respiratory failure [Not Recovered/Not Resolved]
  - Blood potassium increased [Not Recovered/Not Resolved]
  - Dysphagia [Not Recovered/Not Resolved]
  - Productive cough [Not Recovered/Not Resolved]
  - Cardio-respiratory arrest [Fatal]
  - Haemoglobin decreased [Recovering/Resolving]
  - Renal failure [Not Recovered/Not Resolved]
  - PCO2 increased [Recovered/Resolved]

NARRATIVE: CASE EVENT DATE: 20161204
